FAERS Safety Report 8874570 (Version 1)
Quarter: 2012Q4

REPORT INFORMATION
  Report Type: 
  Country: IT (occurrence: IT)
  Receive Date: 20121030
  Receipt Date: 20121030
  Transmission Date: 20130627
  Serious: Yes (Hospitalization)
  Sender: FDA-Public Use
  Company Number: PHHY2012IT095259

PATIENT
  Age: 91 Year
  Sex: Male

DRUGS (2)
  1. METOPROLOL [Suspect]
     Route: 048
     Dates: start: 20110823, end: 20120822
  2. PRITOR [Suspect]
     Dosage: 40 mg, UNK
     Route: 048
     Dates: start: 20110823, end: 20120822

REACTIONS (2)
  - Syncope [Recovering/Resolving]
  - Blood pressure decreased [Recovering/Resolving]
